FAERS Safety Report 6371364-7 (Version None)
Quarter: 2009Q3

REPORT INFORMATION
  Report Type: 
  Country: None (occurrence: None)
  Receive Date: 20090923
  Receipt Date: 20090917
  Transmission Date: 20100115
  Serious: Yes (Hospitalization)
  Sender: FDA-Public Use
  Company Number: US-GILEAD-2009-0024332

PATIENT
  Sex: Female

DRUGS (8)
  1. LETAIRIS [Suspect]
     Indication: PULMONARY ARTERIAL HYPERTENSION
     Route: 048
     Dates: start: 20080104
  2. PLAVIX [Concomitant]
  3. IMDUR [Concomitant]
  4. METOPROLOL TARTRATE [Concomitant]
  5. SPIRONOLACTONE [Concomitant]
  6. BUMEX [Concomitant]
  7. SERTRALINE HCL [Concomitant]
  8. LORTAB [Concomitant]

REACTIONS (1)
  - ANGINA PECTORIS [None]
